FAERS Safety Report 6706200-X (Version None)
Quarter: 2010Q2

REPORT INFORMATION
  Report Type: 
  Country: None (occurrence: None)
  Receive Date: 20100430
  Receipt Date: 20100430
  Transmission Date: 20101027
  Serious: Yes (Hospitalization)
  Sender: FDA-Public Use
  Company Number: None

PATIENT
  Sex: Male
  Weight: 76 kg

DRUGS (2)
  1. CISPLATIN [Suspect]
     Dosage: 50 MG
     Dates: end: 20100412
  2. TAXOL [Suspect]
     Dosage: 100 MG
     Dates: end: 20100412

REACTIONS (1)
  - GASTROINTESTINAL HAEMORRHAGE [None]
